FAERS Safety Report 18800461 (Version 2)
Quarter: 2021Q4

REPORT INFORMATION
  Report Type: Report from Study
  Country: CA (occurrence: CA)
  Receive Date: 20210128
  Receipt Date: 20211208
  Transmission Date: 20220304
  Serious: Yes (Other)
  Sender: FDA-Public Use
  Company Number: CA-PFIZER INC-2021057665

PATIENT
  Age: 54 Year
  Sex: Female

DRUGS (15)
  1. METHOTREXATE SODIUM [Suspect]
     Active Substance: METHOTREXATE SODIUM
     Route: 058
  2. SULFASALAZINE [Suspect]
     Active Substance: SULFASALAZINE
     Dosage: UNK, 1X/DAY
     Route: 048
  3. ERELZI [Suspect]
     Active Substance: ETANERCEPT-SZZS
     Dosage: 50 MG, WEEKLY
     Route: 058
  4. TALTZ [Suspect]
     Active Substance: IXEKIZUMAB
     Route: 058
  5. COSENTYX [Suspect]
     Active Substance: SECUKINUMAB
     Indication: Psoriatic arthropathy
     Dosage: 150 MG, MONTHLY
     Route: 058
  6. COSENTYX [Suspect]
     Active Substance: SECUKINUMAB
     Indication: Psoriasis
  7. COSENTYX [Suspect]
     Active Substance: SECUKINUMAB
     Indication: Psoriatic arthropathy
     Dosage: 300 MG
     Route: 058
  8. COSENTYX [Suspect]
     Active Substance: SECUKINUMAB
     Indication: Psoriasis
     Dosage: 300 MG, MONTHLY
     Route: 058
  9. ARTHROTEC [Concomitant]
     Active Substance: DICLOFENAC SODIUM\MISOPROSTOL
     Route: 048
  10. CELEBREX [Concomitant]
     Active Substance: CELECOXIB
     Route: 065
  11. IBUPROFEN [Concomitant]
     Active Substance: IBUPROFEN
     Route: 065
  12. NAPROXEN [Concomitant]
     Active Substance: NAPROXEN
     Dosage: UNK, 1X/DAY
     Route: 065
  13. OTEZLA [Concomitant]
     Active Substance: APREMILAST
     Dosage: UNK, 1X/DAY
     Route: 048
  14. HUMIRA [Concomitant]
     Active Substance: ADALIMUMAB
     Route: 058
  15. ACETAMINOPHEN [Concomitant]
     Active Substance: ACETAMINOPHEN
     Route: 065

REACTIONS (11)
  - Therapeutic response shortened [Unknown]
  - Psoriasis [Unknown]
  - Product prescribing error [Unknown]
  - Arthritis [Unknown]
  - Dysstasia [Unknown]
  - Gait disturbance [Unknown]
  - Inflammation [Unknown]
  - Movement disorder [Unknown]
  - Pain [Unknown]
  - Psoriatic arthropathy [Unknown]
  - Swollen joint count increased [Unknown]
